FAERS Safety Report 22057645 (Version 1)
Quarter: 2023Q1

REPORT INFORMATION
  Report Type: Spontaneous
  Country: US (occurrence: US)
  Receive Date: 20230303
  Receipt Date: 20230303
  Transmission Date: 20230417
  Serious: Yes (Other)
  Sender: FDA-Public Use
  Company Number: US-CELLTRION INC.-2023US004027

PATIENT

DRUGS (1)
  1. INFLECTRA [Suspect]
     Active Substance: INFLIXIMAB-DYYB
     Indication: Product used for unknown indication
     Dosage: 100 MG FOR 2 WEEKS
     Dates: start: 20220901, end: 20220915

REACTIONS (3)
  - Abdominal pain upper [Unknown]
  - Burning sensation [Unknown]
  - Pruritus [Unknown]
